FAERS Safety Report 6898242-9 (Version None)
Quarter: 2010Q3

REPORT INFORMATION
  Report Type: 
  Country: None (occurrence: None)
  Receive Date: 20100802
  Receipt Date: 20070925
  Transmission Date: 20110219
  Serious: No
  Sender: FDA-Public Use
  Company Number: US-PFIZER INC-2007080988

PATIENT
  Sex: Male
  Weight: 84.09 kg

DRUGS (6)
  1. LYRICA [Suspect]
     Indication: POST HERPETIC NEURALGIA
     Route: 048
     Dates: start: 20070817, end: 20070920
  2. PREDNISONE TAB [Suspect]
     Indication: HERPES ZOSTER
     Dosage: EVERY DAY
     Route: 048
     Dates: start: 20070817
  3. PREDNISONE [Concomitant]
     Route: 051
  4. TENORMIN [Concomitant]
  5. LIPITOR [Concomitant]
  6. LIDOCAINE [Concomitant]

REACTIONS (11)
  - AGEUSIA [None]
  - AGITATION [None]
  - DISORIENTATION [None]
  - DIZZINESS [None]
  - DRY MOUTH [None]
  - DYSGEUSIA [None]
  - ENERGY INCREASED [None]
  - INSOMNIA [None]
  - MUSCLE SPASMS [None]
  - NIGHT SWEATS [None]
  - WEIGHT DECREASED [None]
